FAERS Safety Report 13768111 (Version 4)
Quarter: 2017Q3

REPORT INFORMATION
  Report Type: Spontaneous
  Country: US (occurrence: US)
  Receive Date: 20170719
  Receipt Date: 20170728
  Transmission Date: 20171127
  Serious: Yes (Other)
  Sender: FDA-Public Use
  Company Number: PHHY2017US103503

PATIENT
  Age: 42 Year
  Sex: Male

DRUGS (2)
  1. ESTRADIOL. [Suspect]
     Active Substance: ESTRADIOL
     Indication: TRANSGENDER HORMONAL THERAPY
     Dosage: 6 MG, QW (INITIATED 5 YEARS EARLIER)
     Route: 065
     Dates: start: 2011
  2. MEDROXYPROGESTERONE ACETATE. [Suspect]
     Active Substance: MEDROXYPROGESTERONE ACETATE
     Indication: TRANSGENDER HORMONAL THERAPY
     Dosage: 10 MG, QD
     Route: 065
     Dates: start: 2014

REACTIONS (2)
  - Myocardial infarction [Unknown]
  - Aortic occlusion [Unknown]

NARRATIVE: CASE EVENT DATE: 20160402
